FAERS Safety Report 10085765 (Version 1)
Quarter: 2014Q2

REPORT INFORMATION
  Report Type: Spontaneous
  Country: JP (occurrence: None)
  Receive Date: 20140416
  Receipt Date: 20140416
  Transmission Date: 20141212
  Serious: Yes (Other)
  Sender: FDA-Public Use
  Company Number: JP-20140005

PATIENT
  Sex: Male

DRUGS (1)
  1. LIPIODOL [Suspect]
     Indication: FOETAL EXPOSURE TIMING UNSPECIFIED
     Route: 064

REACTIONS (3)
  - Goitre congenital [None]
  - Dysphagia [None]
  - Maternal drugs affecting foetus [None]
